FAERS Safety Report 17456316 (Version 1)
Quarter: 2020Q1

REPORT INFORMATION
  Report Type: Spontaneous
  Country: CA (occurrence: CA)
  Receive Date: 20200225
  Receipt Date: 20200225
  Transmission Date: 20200409
  Serious: Yes (Hospitalization)
  Sender: FDA-Public Use
  Company Number: CA-TEVA-2020-CA-1189392

PATIENT
  Age: 61 Year
  Sex: Female

DRUGS (1)
  1. METHYLPREDNISOLONE SODIUM SUCCINATE. [Suspect]
     Active Substance: METHYLPREDNISOLONE SODIUM SUCCINATE
     Indication: CROHN^S DISEASE
     Route: 042

REACTIONS (6)
  - Herpes simplex colitis [Unknown]
  - Product use in unapproved indication [Unknown]
  - Perforation [Unknown]
  - Pneumoperitoneum [Unknown]
  - Off label use [Unknown]
  - Peritonitis [Unknown]
